FAERS Safety Report 6279322-8 (Version None)
Quarter: 2009Q3

REPORT INFORMATION
  Report Type: 
  Country: None (occurrence: None)
  Receive Date: 20090723
  Receipt Date: 20081024
  Transmission Date: 20100115
  Serious: No
  Sender: FDA-Public Use
  Company Number: US-AMGEN-KDL315690

PATIENT
  Sex: Female
  Weight: 53.6 kg

DRUGS (4)
  1. PROCRIT [Suspect]
     Indication: ANAEMIA
     Dates: start: 20020101
  2. CYCLOSPORINE [Concomitant]
  3. PREDNISONE TAB [Concomitant]
  4. ESTROGEN NOS [Concomitant]

REACTIONS (9)
  - DIZZINESS [None]
  - EYELID DISORDER [None]
  - FATIGUE [None]
  - FEELING ABNORMAL [None]
  - HAEMOGLOBIN DECREASED [None]
  - HAEMOGLOBIN INCREASED [None]
  - HYPOKINESIA [None]
  - MUSCULAR WEAKNESS [None]
  - OCULAR HYPERAEMIA [None]
